FAERS Safety Report 7986844-8 (Version None)
Quarter: 2011Q4

REPORT INFORMATION
  Report Type: 
  Country: None (occurrence: None)
  Receive Date: 20111216
  Receipt Date: 20110302
  Transmission Date: 20120403
  Serious: No
  Sender: FDA-Public Use
  Company Number: US-BRISTOL-MYERS SQUIBB COMPANY-15570831

PATIENT
  Age: 9 Year
  Sex: Male

DRUGS (6)
  1. ADDERALL 5 [Suspect]
  2. METHYLPHENIDATE [Suspect]
  3. ZOLOFT [Concomitant]
  4. FLUOXETINE [Suspect]
  5. ABILIFY [Suspect]
     Indication: ATTENTION DEFICIT/HYPERACTIVITY DISORDER
     Dosage: STARTED AS 2 MG BID THEN REDUCED TO 2MG QD THEN BACK TO 2MG BID
     Route: 048
  6. ABILIFY [Suspect]
     Indication: IMPULSIVE BEHAVIOUR
     Dosage: STARTED AS 2 MG BID THEN REDUCED TO 2MG QD THEN BACK TO 2MG BID
     Route: 048

REACTIONS (1)
  - NASAL CONGESTION [None]
